FAERS Safety Report 6105582-X (Version None)
Quarter: 2009Q1

REPORT INFORMATION
  Report Type: 
  Country: None (occurrence: None)
  Receive Date: 20090304
  Receipt Date: 20090304
  Transmission Date: 20090719
  Serious: Yes (Other)
  Sender: FDA-Public Use
  Company Number: None

PATIENT
  Age: 52 Year
  Sex: Female
  Weight: 48.5349 kg

DRUGS (1)
  1. CHANTIX [Suspect]
     Indication: SMOKING CESSATION THERAPY
     Dosage: 1 MG TWICE DAILY PO
     Route: 048
     Dates: start: 20090211, end: 20090227

REACTIONS (10)
  - ABNORMAL DREAMS [None]
  - ASTHENIA [None]
  - FATIGUE [None]
  - FLANK PAIN [None]
  - FLUID RETENTION [None]
  - HYPOAESTHESIA [None]
  - JOINT STIFFNESS [None]
  - PARAESTHESIA [None]
  - SLEEP DISORDER [None]
  - SWELLING FACE [None]
